FAERS Safety Report 24653085 (Version 2)
Quarter: 2024Q4

REPORT INFORMATION
  Report Type: Spontaneous
  Country: JP (occurrence: JP)
  Receive Date: 20241122
  Receipt Date: 20241204
  Transmission Date: 20250115
  Serious: Yes (Hospitalization, Other)
  Sender: PFIZER
  Company Number: JP-PFIZER INC-PV202400131461

PATIENT
  Age: 82 Year
  Sex: Female
  Weight: 43.1 kg

DRUGS (16)
  1. ELREXFIO [Suspect]
     Active Substance: ELRANATAMAB-BCMM
     Dosage: 12 MG, SINGLE, DOSE 1
     Route: 058
     Dates: start: 20240906
  2. ELREXFIO [Suspect]
     Active Substance: ELRANATAMAB-BCMM
     Dosage: 32 MG, SINGLE, DOSE2
     Route: 058
     Dates: start: 20240909
  3. ELREXFIO [Suspect]
     Active Substance: ELRANATAMAB-BCMM
     Dosage: 76 MG, SINGLE, DOSE 3
     Route: 058
     Dates: start: 20240913
  4. ELREXFIO [Suspect]
     Active Substance: ELRANATAMAB-BCMM
     Dosage: 76 MG, SINGLE, DOSE 4
     Route: 058
     Dates: start: 20240920
  5. ELREXFIO [Suspect]
     Active Substance: ELRANATAMAB-BCMM
     Dosage: 76 MG, SINGLE, DOSE 5
     Route: 058
     Dates: start: 20240927, end: 20240927
  6. ELREXFIO [Suspect]
     Active Substance: ELRANATAMAB-BCMM
     Dosage: 76 MG, SINGLE, DOSE 6
     Route: 058
     Dates: start: 20241004, end: 20241004
  7. ASPIRIN [Concomitant]
     Active Substance: ASPIRIN
     Indication: Thrombosis prophylaxis
     Dosage: 1 DF, 1X/DAY
  8. HERBALS [Concomitant]
     Active Substance: HERBALS
     Indication: Constipation
     Dosage: 1 DF, 3X/DAY
  9. LEVOFLOXACIN [Concomitant]
     Active Substance: LEVOFLOXACIN
     Indication: Infection prophylaxis
     Dosage: 1 DF, 1X/DAY
  10. METHYLCOBALAMIN [Concomitant]
     Active Substance: METHYLCOBALAMIN
     Indication: Neuropathy peripheral
     Dosage: 1 DF, 3X/DAY
  11. MIYABM [Concomitant]
     Indication: Diarrhoea
     Dosage: 1 DF, 3X/DAY
  12. ZINC [Concomitant]
     Active Substance: ZINC
     Indication: Zinc deficiency
     Dosage: 1 DF, 2X/DAY
  13. SULPIRIDE [Concomitant]
     Active Substance: SULPIRIDE
     Indication: Gastritis
     Dosage: 1 DF, 3X/DAY
  14. SYMPROIC [Concomitant]
     Active Substance: NALDEMEDINE
     Indication: Constipation
     Dosage: 1 DF, 1X/DAY
  15. URSO [Concomitant]
     Active Substance: URSODIOL
     Indication: Chronic hepatitis
     Dosage: 1 DF, 2X/DAY
  16. ZOVIRAX [Concomitant]
     Active Substance: ACYCLOVIR
     Indication: Herpes zoster
     Dosage: 1 DF, 1X/DAY

REACTIONS (2)
  - COVID-19 pneumonia [Not Recovered/Not Resolved]
  - Coronavirus infection [Not Recovered/Not Resolved]

NARRATIVE: CASE EVENT DATE: 20241009
